FAERS Safety Report 7244905-5 (Version None)
Quarter: 2011Q1

REPORT INFORMATION
  Report Type: 
  Country: None (occurrence: None)
  Receive Date: 20110126
  Receipt Date: 20110119
  Transmission Date: 20110831
  Serious: Yes (Hospitalization)
  Sender: FDA-Public Use
  Company Number: FR-PFIZER INC-2011012687

PATIENT
  Age: 68 Year
  Sex: Male

DRUGS (7)
  1. LYRICA [Suspect]
     Dosage: UNK MG, 2X/DAY
     Route: 048
     Dates: start: 20101008
  2. SULFARLEM [Concomitant]
  3. DAFALGAN [Concomitant]
  4. VITAMIN B-12 [Concomitant]
  5. VITAMIN B1 TAB [Concomitant]
  6. LYRICA [Suspect]
     Dosage: 100 MG, 2X/DAY
     Dates: start: 20101115, end: 20101201
  7. NICOBION [Concomitant]

REACTIONS (5)
  - IRRITABILITY [None]
  - AGITATION [None]
  - AGGRESSION [None]
  - ABNORMAL BEHAVIOUR [None]
  - EUPHORIC MOOD [None]
